FAERS Safety Report 6387449-5 (Version None)
Quarter: 2009Q3

REPORT INFORMATION
  Report Type: 
  Country: None (occurrence: None)
  Receive Date: 20090930
  Receipt Date: 20090918
  Transmission Date: 20100115
  Serious: Yes (Hospitalization)
  Sender: FDA-Public Use
  Company Number: 2009AL006101

PATIENT
  Age: 41 Year
  Sex: Female
  Weight: 86.1834 kg

DRUGS (1)
  1. DIGOXIN [Suspect]

REACTIONS (4)
  - AMNESIA [None]
  - APHASIA [None]
  - MALAISE [None]
  - TRANSIENT ISCHAEMIC ATTACK [None]
